FAERS Safety Report 9267656 (Version 1)
Quarter: 2013Q2

REPORT INFORMATION
  Report Type: Spontaneous
  Country: US (occurrence: US)
  Receive Date: 20130502
  Receipt Date: 20130502
  Transmission Date: 20140414
  Serious: Yes (Disabling, Other)
  Sender: FDA-Public Use
  Company Number: US-ALEXION-A201200732

PATIENT
  Sex: Female

DRUGS (3)
  1. SOLIRIS 300MG [Suspect]
     Indication: HAEMOLYTIC URAEMIC SYNDROME
     Dosage: 900 MG, QW X 4
     Route: 042
     Dates: start: 201203
  2. SOLIRIS 300MG [Suspect]
     Dosage: 1200 MG, Q2W
     Route: 042
     Dates: start: 201204
  3. ANTIHYPERTENSIVES [Concomitant]
     Dosage: UNK

REACTIONS (3)
  - Blindness [Not Recovered/Not Resolved]
  - Retinal artery thrombosis [Not Recovered/Not Resolved]
  - Retinal ischaemia [Not Recovered/Not Resolved]
